FAERS Safety Report 7199155-8 (Version None)
Quarter: 2010Q4

REPORT INFORMATION
  Report Type: 
  Country: None (occurrence: None)
  Receive Date: 20101223
  Receipt Date: 20101223
  Transmission Date: 20110411
  Serious: No
  Sender: FDA-Public Use
  Company Number: None

PATIENT

DRUGS (1)
  1. LUPRON DEPOT-PED [Suspect]
     Indication: PRECOCIOUS PUBERTY
     Dosage: VARIOUS DOSES IM
     Route: 017
     Dates: start: 20090101, end: 20101215

REACTIONS (2)
  - DEVICE BREAKAGE [None]
  - DEVICE MALFUNCTION [None]
